FAERS Safety Report 11658375 (Version 1)
Quarter: 2015Q4

REPORT INFORMATION
  Report Type: Report from Study
  Country: CA (occurrence: CA)
  Receive Date: 20151026
  Receipt Date: 20151026
  Transmission Date: 20160304
  Serious: Yes (Death, Other)
  Sender: FDA-Public Use
  Company Number: CA-AMGEN-CANSL2015111502

PATIENT
  Age: 79 Year
  Sex: Female

DRUGS (3)
  1. XGEVA [Suspect]
     Active Substance: DENOSUMAB
     Indication: PRODUCT USED FOR UNKNOWN INDICATION
     Dosage: 120 MG/ML, UNK
     Route: 065
     Dates: start: 20150619
  2. HYDROMORPHONE [Concomitant]
     Active Substance: HYDROMORPHONE
  3. TYLENOL [Concomitant]
     Active Substance: ACETAMINOPHEN

REACTIONS (2)
  - Death [Fatal]
  - Therapeutic response unexpected [Unknown]

NARRATIVE: CASE EVENT DATE: 20151019
